FAERS Safety Report 21190190 (Version 2)
Quarter: 2022Q3

REPORT INFORMATION
  Report Type: Spontaneous
  Country: NL (occurrence: NR)
  Receive Date: 20220809
  Receipt Date: 20220810
  Transmission Date: 20221027
  Serious: Yes (Life-Threatening, Hospitalization, Other)
  Sender: FDA-Public Use
  Company Number: NL-LRB-00376516

PATIENT
  Age: 60 Year
  Sex: Male
  Weight: 97 kg

DRUGS (4)
  1. NIVOLUMAB [Suspect]
     Active Substance: NIVOLUMAB
     Indication: Malignant melanoma
     Dosage: INTRAVENOUS, 2 TIMES, 95 MG
     Route: 042
     Dates: start: 20191216, end: 20200124
  2. IPILIMUMAB [Suspect]
     Active Substance: IPILIMUMAB
     Indication: Malignant melanoma
     Dosage: INTRAVENOUS, 2 TIMES, 290 MG
     Route: 042
     Dates: start: 20191216, end: 20200124
  3. KEPPRA [Concomitant]
     Active Substance: LEVETIRACETAM
     Indication: Product used for unknown indication
     Dosage: 2 DAILY DOSES OF 1000 MG
  4. SERTRALINE [Concomitant]
     Active Substance: SERTRALINE HYDROCHLORIDE
     Dosage: 1DD 100MG

REACTIONS (3)
  - Diarrhoea [Recovering/Resolving]
  - Immune-mediated enterocolitis [Recovering/Resolving]
  - Prescribed underdose [Unknown]

NARRATIVE: CASE EVENT DATE: 20200120
